FAERS Safety Report 10420899 (Version 1)
Quarter: 2014Q3

REPORT INFORMATION
  Report Type: Spontaneous
  Country: US (occurrence: None)
  Receive Date: 20140829
  Receipt Date: 20140829
  Transmission Date: 20150326
  Serious: Yes (Hospitalization)
  Sender: FDA-Public Use
  Company Number: None

PATIENT
  Age: 74 Year
  Sex: Female
  Weight: 56.1 kg

DRUGS (1)
  1. RITUXIMAB [Suspect]
     Active Substance: RITUXIMAB
     Indication: RHEUMATOID ARTHRITIS
     Dosage: 500 MG ONCE IV
     Route: 042
     Dates: start: 20060106, end: 20060106

REACTIONS (4)
  - Unresponsive to stimuli [None]
  - Tremor [None]
  - Convulsion [None]
  - Muscle rigidity [None]

NARRATIVE: CASE EVENT DATE: 20090106
